FAERS Safety Report 4597045-8 (Version None)
Quarter: 2005Q1

REPORT INFORMATION
  Report Type: 
  Country: None (occurrence: None)
  Receive Date: 20050301
  Receipt Date: 20050216
  Transmission Date: 20050727
  Serious: Yes (Hospitalization)
  Sender: FDA-Public Use
  Company Number: 2005031567

PATIENT
  Age: 63 Year
  Sex: Male

DRUGS (12)
  1. PRAZOSIN GITS [Suspect]
     Indication: ESSENTIAL HYPERTENSION
     Dosage: 6 MG (DAILY), ORAL
     Route: 048
  2. ATENOLOL [Suspect]
     Indication: ESSENTIAL HYPERTENSION
     Dosage: 25 MG (DAILY), ORAL
     Route: 048
     Dates: start: 20040222
  3. FUROSEMIDE [Concomitant]
     Indication: ILL-DEFINED DISORDER
     Dosage: 20 MG (DAILY), ORAL
     Route: 048
  4. DILTIAZEM [Suspect]
     Indication: ESSENTIAL HYPERTENSION
     Dosage: 180 MG (DAILY), ORAL
     Route: 048
     Dates: end: 20040222
  5. RAMIPRIL [Suspect]
     Indication: ESSENTIAL HYPERTENSION
     Dosage: 2 MG (DAILY), ORAL
     Route: 048
  6. CYCLOSPORINE [Concomitant]
  7. PREDNISONE [Concomitant]
  8. MYCOPHENOLATE MOFETIL (MYCOPHENOLATE MOFETIL) [Concomitant]
  9. CALCIUM CARBONATE (CALCIUM CARBONATE) [Concomitant]
  10. POTASSIUM CHLORIDE [Concomitant]
  11. CALCITROL (CALCIUM CARBONATE, ERGOCALCIFEROL, RETINOL) [Concomitant]
  12. VALACICLOVIR HYDROCHLORIDE (VALACICLOVIR HYDROCHLORIDE) [Concomitant]

REACTIONS (4)
  - BLOOD PRESSURE IMMEASURABLE [None]
  - BRADYCARDIA [None]
  - HYPOTENSION [None]
  - SHOCK [None]
